FAERS Safety Report 23601387 (Version 1)
Quarter: 2024Q1

REPORT INFORMATION
  Report Type: Spontaneous
  Country: US (occurrence: None)
  Receive Date: 20240305
  Receipt Date: 20240305
  Transmission Date: 20240409
  Serious: Yes (Other)
  Sender: FDA-Public Use
  Company Number: None

PATIENT
  Age: 52 Year
  Sex: Female

DRUGS (15)
  1. AMBRISENTAN [Suspect]
     Active Substance: AMBRISENTAN
     Indication: Pulmonary hypertension
     Dosage: FREQUENCY : DAILY;?
     Route: 048
     Dates: start: 20170626
  2. SELEXIPAG [Concomitant]
     Active Substance: SELEXIPAG
  3. METFORMIN [Concomitant]
     Active Substance: METFORMIN HYDROCHLORIDE
  4. PANTOPRAZOLE [Concomitant]
     Active Substance: PANTOPRAZOLE
  5. PULMICORT TURBUHALER [Concomitant]
     Active Substance: BUDESONIDE
  6. Humlin NPH [Concomitant]
  7. ROSUVASTATIN [Concomitant]
     Active Substance: ROSUVASTATIN
  8. JARDIANCE [Concomitant]
     Active Substance: EMPAGLIFLOZIN
  9. GLIPIZIDE [Concomitant]
     Active Substance: GLIPIZIDE
  10. FUROSEMIDE [Concomitant]
     Active Substance: FUROSEMIDE
  11. Triamciniolone top oint [Concomitant]
  12. DIGOXIN [Concomitant]
     Active Substance: DIGOXIN
  13. SPIRONOLACTONE [Concomitant]
     Active Substance: SPIRONOLACTONE
  14. ALBUTEROL SULFATE [Concomitant]
     Active Substance: ALBUTEROL SULFATE
  15. OXYGEN [Concomitant]
     Active Substance: OXYGEN

REACTIONS (3)
  - Facial pain [None]
  - Ear pain [None]
  - Road traffic accident [None]

NARRATIVE: CASE EVENT DATE: 20240222
